FAERS Safety Report 9541658 (Version 1)
Quarter: 2013Q3

REPORT INFORMATION
  Report Type: Spontaneous
  Country: US (occurrence: US)
  Receive Date: 20130923
  Receipt Date: 20130923
  Transmission Date: 20140515
  Serious: Yes (Other)
  Sender: FDA-Public Use
  Company Number: US-SANOFI-AVENTIS-2013SA091549

PATIENT
  Age: 77 Year
  Sex: Male

DRUGS (3)
  1. LANTUS SOLOSTAR [Suspect]
     Indication: TYPE 2 DIABETES MELLITUS
     Dosage: STARTED 2-3 YEARS AGO?DOSAGE: 40 MINI
     Route: 058
  2. WARFARIN [Suspect]
     Indication: ATRIAL FIBRILLATION
     Route: 065
  3. SOLOSTAR [Concomitant]

REACTIONS (3)
  - Coagulopathy [Unknown]
  - Atrial fibrillation [Unknown]
  - Injection site bruising [Unknown]
